FAERS Safety Report 12782561 (Version 1)
Quarter: 2016Q3

REPORT INFORMATION
  Report Type: Spontaneous
  Country: US (occurrence: US)
  Receive Date: 20160926
  Receipt Date: 20160926
  Transmission Date: 20161109
  Serious: Yes (Disabling)
  Sender: FDA-Public Use
  Company Number: None

PATIENT
  Age: 59 Year
  Sex: Female
  Weight: 66 kg

DRUGS (6)
  1. MULTIVITAMIN [Concomitant]
     Active Substance: VITAMINS
  2. MAGNESIUM [Concomitant]
     Active Substance: MAGNESIUM
  3. CIPROXIN 500 BAYER [Suspect]
     Active Substance: CIPROFLOXACIN
     Indication: VAGINAL INFECTION
     Route: 048
     Dates: start: 20160805, end: 20160819
  4. VITAMIN C [Concomitant]
     Active Substance: ASCORBIC ACID
  5. CIPROXIN 500 BAYER [Suspect]
     Active Substance: CIPROFLOXACIN
     Indication: OVERGROWTH BACTERIAL
     Route: 048
     Dates: start: 20160805, end: 20160819
  6. VITAMIN B COMPLEX [Concomitant]
     Active Substance: CYANOCOBALAMIN\DEXPANTHENOL\NIACINAMIDE\PYRIDOXINE HYDROCHLORIDE\RIBOFLAVIN 5^-PHOSPHATE SODIUM\THIAMINE HYDROCHLORIDE\VITAMIN B COMPLEX

REACTIONS (8)
  - Palpitations [None]
  - Memory impairment [None]
  - Vision blurred [None]
  - Mental disorder [None]
  - Tinnitus [None]
  - Ocular hyperaemia [None]
  - Suicidal ideation [None]
  - Hallucination, visual [None]

NARRATIVE: CASE EVENT DATE: 20160819
